FAERS Safety Report 18730078 (Version 1)
Quarter: 2021Q1

REPORT INFORMATION
  Report Type: Spontaneous
  Country: GB (occurrence: GB)
  Receive Date: 20210112
  Receipt Date: 20210112
  Transmission Date: 20210419
  Serious: Yes (Other)
  Sender: FDA-Public Use
  Company Number: GB-TEVA-2021-GB-1867138

PATIENT
  Age: 45 Year
  Sex: Female
  Weight: 53 kg

DRUGS (27)
  1. RIZATRIPTAN. [Concomitant]
     Active Substance: RIZATRIPTAN
     Dosage: AS DIRECTED, UNIT DOSE : 1 DOSAGE FORMS
     Dates: start: 20201106, end: 20201204
  2. NOVORAPID [Concomitant]
     Active Substance: INSULIN ASPART
     Dosage: IMMEDIATELY BEFORE.
     Route: 058
     Dates: start: 20200911
  3. CLARITHROMYCIN. [Suspect]
     Active Substance: CLARITHROMYCIN
     Dosage: UNIT DOSE : 500 MG
     Dates: start: 20201214
  4. SUMATRIPTAN. [Concomitant]
     Active Substance: SUMATRIPTAN
     Indication: HEADACHE
     Dosage: TAKE ONE AS SOON AS HEADACHES AS STARTS, ONE TA., UNIT DOSE : 1 DOSAGE FORMS
     Dates: start: 20200911, end: 20201106
  5. DOXYCYCLINE. [Concomitant]
     Active Substance: DOXYCYCLINE
     Dosage: TWO NOW THEN ONE DAILY (PLEASE COMPLETE THE COU.
     Dates: start: 20201214
  6. CETIRIZINE [Concomitant]
     Active Substance: CETIRIZINE HYDROCHLORIDE
     Dosage: TWO TO BE TAKEN AN HOUR BEFORE DIALYSIS, UNIT DOSE : 2 DOSAGE FORMS
     Dates: start: 20200911
  7. DOMPERIDONE [Concomitant]
     Active Substance: DOMPERIDONE
     Dosage: ONE TO BE TAKEN UP TO THREE TIMES A DAY. MAXIMU. UNIT DOSE : 1 DOSAGE FORMS
     Dates: start: 20200911
  8. GAVISCON ADVANCE [Concomitant]
     Active Substance: POTASSIUM BICARBONATE\SODIUM ALGINATE
     Dosage: 5ML ? 10ML 4 TIMES/DAY
     Dates: start: 20200911
  9. HYDROCORTISONE. [Concomitant]
     Active Substance: HYDROCORTISONE
     Dosage: APPLY, UNIT DOSE : 2 DOSAGE FORMS
     Dates: start: 20201214
  10. OXYCODONE HYDROCHLORIDE. [Concomitant]
     Active Substance: OXYCODONE HYDROCHLORIDE
     Dosage: 10?15MG EVERY 2 HOURS
     Dates: start: 20200911
  11. ARANESP [Concomitant]
     Active Substance: DARBEPOETIN ALFA
     Dosage: USE AS DIRECTED
     Dates: start: 20200911
  12. DESOGESTREL [Concomitant]
     Active Substance: DESOGESTREL
     Dosage: UNIT DOSE : 1 DOSAGE FORMS
     Dates: start: 20200911
  13. ONDANSETRON [Concomitant]
     Active Substance: ONDANSETRON
     Indication: NAUSEA
     Dosage: TAKE 1 TABLET, UP TO 3 TIMES A DAY WHEN NAUSEAT. UNIT DOSE : 1 DOSAGE FORMS
     Dates: start: 20200911
  14. CHLORPHENAMINE [Concomitant]
     Active Substance: CHLORPHENIRAMINE MALEATE
     Dosage: ONE TO BE TAKEN EVERY FOUR TO SIX HOURS, UNIT DOSE : 1 DOSAGE FORMS
     Dates: start: 20200911
  15. EMLA [Concomitant]
     Active Substance: LIDOCAINE\PRILOCAINE
     Dosage: APPLY AS DIRECTED
     Dates: start: 20200911
  16. LOPERAMIDE [Concomitant]
     Active Substance: LOPERAMIDE
     Dosage: WHEN NEEDED, UNIT DOSE : 4 DOSAGE FORMS
     Dates: start: 20200911
  17. ALFACALCIDOL [Concomitant]
     Active Substance: ALFACALCIDOL
     Dosage: UNIT DOSE : 1 DOSAGE FORMS
     Dates: start: 20200911
  18. FUROSEMIDE. [Concomitant]
     Active Substance: FUROSEMIDE
     Dosage: 2 DOSAGE FORMS DAILY; EACH MORNING
     Dates: start: 20200911
  19. OMEPRAZOLE. [Concomitant]
     Active Substance: OMEPRAZOLE
     Dosage: UNIT DOSE : 1 DOSAGE FORMS
     Dates: start: 20200911
  20. AMLODIPINE [Concomitant]
     Active Substance: AMLODIPINE BESYLATE
     Dosage: UNIT DOSE : 1 DOSAGE FORMS
     Dates: start: 20200911
  21. GLUCOSE [Concomitant]
     Active Substance: DEXTROSE
     Indication: HYPOGLYCAEMIA
     Dates: start: 20200911
  22. SEVELAMER [Concomitant]
     Active Substance: SEVELAMER
     Dosage: UNIT DOSE : 6 DOSAGE FORMS
     Dates: start: 20200911
  23. METOLAZONE. [Concomitant]
     Active Substance: METOLAZONE
     Dosage: UNIT DOSE : 1 DOSAGE FORMS
     Dates: start: 20200911
  24. CODEINE PHOSPHATE [Concomitant]
     Active Substance: CODEINE PHOSPHATE
     Dosage: WHEN REQUIRED. UNIT DOSE : 8 DOSAGE FORMS
     Dates: start: 20200911
  25. DOXAZOSIN [Concomitant]
     Active Substance: DOXAZOSIN MESYLATE
     Dosage: UNIT DOSE : 1 DOSAGE FORMS
     Dates: start: 20200911
  26. TOUJEO [Concomitant]
     Active Substance: INSULIN GLARGINE
     Dosage: UNIT DOSE : 15 IU
     Dates: start: 20200911
  27. CYCLIZINE [Concomitant]
     Active Substance: CYCLIZINE
     Dosage: UNIT DOSE : 3 DOSAGE FORMS
     Dates: start: 20200911

REACTIONS (4)
  - Blister [Not Recovered/Not Resolved]
  - Stomatitis [Unknown]
  - Diarrhoea [Not Recovered/Not Resolved]
  - Mucosal inflammation [Not Recovered/Not Resolved]

NARRATIVE: CASE EVENT DATE: 20201214
